FAERS Safety Report 16874077 (Version 1)
Quarter: 2019Q4

REPORT INFORMATION
  Report Type: Spontaneous
  Country: US (occurrence: US)
  Receive Date: 20191001
  Receipt Date: 20191001
  Transmission Date: 20200122
  Serious: No
  Sender: FDA-Public Use
  Company Number: US-BRISTOL-MYERS SQUIBB COMPANY-BMS-2019-090304

PATIENT
  Sex: Female
  Weight: 76.6 kg

DRUGS (3)
  1. DILANTIN SODIUM [Interacting]
     Active Substance: PHENYTOIN SODIUM
     Indication: GENERALISED TONIC-CLONIC SEIZURE
     Dosage: 100 MILLIGRAM, IN THE EVENING
     Route: 048
  2. DILANTIN SODIUM [Interacting]
     Active Substance: PHENYTOIN SODIUM
     Indication: PETIT MAL EPILEPSY
     Dosage: 100 MILLIGRAM, MORNING AND NIGHT
     Route: 048
  3. ELIQUIS [Suspect]
     Active Substance: APIXABAN
     Indication: PRODUCT USED FOR UNKNOWN INDICATION
     Dosage: UNK
     Route: 065

REACTIONS (1)
  - Drug interaction [Unknown]
